FAERS Safety Report 9701959 (Version 1)
Quarter: 2013Q4

REPORT INFORMATION
  Report Type: Spontaneous
  Country: CH (occurrence: None)
  Receive Date: 20131120
  Receipt Date: 20131120
  Transmission Date: 20140711
  Serious: Yes (Other)
  Sender: FDA-Public Use
  Company Number: 20130656

PATIENT
  Age: 42 Year
  Sex: Female

DRUGS (5)
  1. FERINJECT [Suspect]
     Indication: ANAEMIA
     Route: 041
     Dates: start: 20130328, end: 20130328
  2. CIPRALEX (ESCITALOPRAM OXALATE) [Concomitant]
  3. IDEOS (CALCIUM CARBONATE + CHOLECALCIFEROL) [Concomitant]
  4. OLCALDIL (CLOXAZOLAM) [Concomitant]
  5. RISIDON (METFORMIN HYDROCHLORIDE) [Concomitant]

REACTIONS (7)
  - Skin hyperpigmentation [None]
  - Infusion site extravasation [None]
  - Infusion site discolouration [None]
  - Hypersensitivity [None]
  - Skin discolouration [None]
  - Infusion site haematoma [None]
  - Rash [None]
